FAERS Safety Report 5518640-5 (Version None)
Quarter: 2007Q4

REPORT INFORMATION
  Report Type: 
  Country: None (occurrence: None)
  Receive Date: 20071113
  Receipt Date: 20071025
  Transmission Date: 20080405
  Serious: Yes (Life-Threatening, Hospitalization, Other)
  Sender: FDA-Public Use
  Company Number: VER_00085_2007

PATIENT
  Age: 40 Year
  Sex: Male

DRUGS (2)
  1. TWINJECT [Suspect]
     Indication: ANAPHYLACTIC REACTION
     Dosage: (0.3 MG INTRAMUSCULAR)
     Route: 030
     Dates: start: 20070802
  2. OTHER ANTI-ASTHMATICS, INHALANTS [Concomitant]

REACTIONS (2)
  - CHEST DISCOMFORT [None]
  - DEVICE FAILURE [None]
